FAERS Safety Report 5945796-2 (Version None)
Quarter: 2008Q4

REPORT INFORMATION
  Report Type: 
  Country: None (occurrence: None)
  Receive Date: 20081106
  Receipt Date: 20081104
  Transmission Date: 20090506
  Serious: Yes (Other)
  Sender: FDA-Public Use
  Company Number: A0744397A

PATIENT
  Age: 86 Year
  Sex: Male

DRUGS (1)
  1. UREA PEROXIDE [Suspect]
     Dosage: AURAL
     Route: 001

REACTIONS (3)
  - CERUMEN IMPACTION [None]
  - DEAFNESS BILATERAL [None]
  - EAR DISCOMFORT [None]
